FAERS Safety Report 5719070-3 (Version None)
Quarter: 2008Q2

REPORT INFORMATION
  Report Type: 
  Country: None (occurrence: None)
  Receive Date: 20080423
  Receipt Date: 20080415
  Transmission Date: 20081010
  Serious: Yes (Hospitalization, Other)
  Sender: FDA-Public Use
  Company Number: 14241

PATIENT
  Age: 52 Year
  Sex: Female

DRUGS (1)
  1. METHOTREXATE [Suspect]
     Indication: PSORIATIC ARTHROPATHY
     Dosage: 15 MG WEEKLY

REACTIONS (8)
  - BILE DUCT CANCER [None]
  - HYPERCALCAEMIA [None]
  - HYPERPARATHYROIDISM [None]
  - ILL-DEFINED DISORDER [None]
  - NEOPLASM MALIGNANT [None]
  - PARATHYROID TUMOUR BENIGN [None]
  - PROCEDURAL VOMITING [None]
  - RENAL DISORDER [None]
